FAERS Safety Report 8984849 (Version 1)
Quarter: 2012Q4

REPORT INFORMATION
  Report Type: 
  Country: US (occurrence: US)
  Receive Date: 20121226
  Receipt Date: 20121226
  Transmission Date: 20130627
  Serious: No
  Sender: FDA-Public Use
  Company Number: US-BAYER-2012-130956

PATIENT
  Sex: Female
  Weight: 91 kg

DRUGS (4)
  1. BETASERON [Suspect]
     Indication: MS
     Dosage: 0.25 ml, QOD
     Route: 058
     Dates: start: 201209
  2. BETASERON [Suspect]
     Indication: MS
     Dosage: 0.5 ml, QOD
     Route: 058
  3. BETASERON [Suspect]
     Indication: MS
     Dosage: 0.75 ml, QOD
     Route: 058
  4. BETASERON [Suspect]
     Indication: MS
     Dosage: 1 ml, QOD
     Route: 058

REACTIONS (3)
  - Injection site erythema [Unknown]
  - Injection site pain [Unknown]
  - Injection site swelling [Unknown]
